FAERS Safety Report 11421724 (Version 4)
Quarter: 2015Q4

REPORT INFORMATION
  Report Type: Spontaneous
  Country: JP (occurrence: JP)
  Receive Date: 20150827
  Receipt Date: 20151014
  Transmission Date: 20160304
  Serious: Yes (Hospitalization, Other)
  Sender: FDA-Public Use
  Company Number: JP-ABBVIE-15K-087-1423553-00

PATIENT
  Age: 61 Year
  Sex: Male
  Weight: 65 kg

DRUGS (4)
  1. BETAMETHASONE BUTYRATE PROPIONATE [Concomitant]
     Active Substance: BETAMETHASONE BUTYRATE PROPIONATE
     Indication: PSORIASIS
     Route: 061
     Dates: start: 20130502
  2. HUMIRA [Suspect]
     Active Substance: ADALIMUMAB
     Route: 058
     Dates: end: 20150414
  3. HUMIRA [Suspect]
     Active Substance: ADALIMUMAB
     Indication: PSORIASIS
     Route: 058
     Dates: start: 20130423, end: 20130423
  4. CALCIPOTRIOL [Concomitant]
     Active Substance: CALCIPOTRIENE
     Indication: PRODUCT USED FOR UNKNOWN INDICATION
     Route: 061

REACTIONS (2)
  - Computerised tomogram thorax abnormal [Not Recovered/Not Resolved]
  - Tuberculin test positive [Unknown]

NARRATIVE: CASE EVENT DATE: 20130423
